FAERS Safety Report 15547443 (Version 3)
Quarter: 2019Q1

REPORT INFORMATION
  Report Type: Spontaneous
  Country: US (occurrence: US)
  Receive Date: 20181024
  Receipt Date: 20190114
  Transmission Date: 20190417
  Serious: Yes (Hospitalization)
  Sender: FDA-Public Use
  Company Number: US-OTSUKA-2017_019124

PATIENT
  Age: 62 Year
  Sex: Male
  Weight: 87 kg

DRUGS (44)
  1. DIAZEPAM. [Concomitant]
     Active Substance: DIAZEPAM
     Indication: PRODUCT USED FOR UNKNOWN INDICATION
     Dosage: 10 MG, BID
     Route: 065
  2. ZOLOFT [Concomitant]
     Active Substance: SERTRALINE HYDROCHLORIDE
     Indication: PRODUCT USED FOR UNKNOWN INDICATION
     Dosage: 100 MG, UNK
     Route: 065
  3. ZOLOFT [Concomitant]
     Active Substance: SERTRALINE HYDROCHLORIDE
     Dosage: 50 MG, UNK
     Route: 065
  4. LISINOPRIL. [Concomitant]
     Active Substance: LISINOPRIL
     Indication: PRODUCT USED FOR UNKNOWN INDICATION
     Dosage: UNK
     Route: 065
  5. DEPAKOTE [Concomitant]
     Active Substance: DIVALPROEX SODIUM
     Dosage: UNK
     Route: 065
     Dates: start: 2008
  6. LEVSIN [Concomitant]
     Active Substance: HYOSCYAMINE SULFATE
     Indication: PRODUCT USED FOR UNKNOWN INDICATION
     Dosage: 0.125 MG, QD
     Route: 048
     Dates: start: 20101209
  7. ABILIFY [Suspect]
     Active Substance: ARIPIPRAZOLE
     Dosage: 2 MG, UNK
     Route: 065
     Dates: start: 201004, end: 201105
  8. PROZAC [Concomitant]
     Active Substance: FLUOXETINE HYDROCHLORIDE
     Indication: PRODUCT USED FOR UNKNOWN INDICATION
     Dosage: 40 MG, UNK
     Route: 065
     Dates: start: 201708
  9. SYNTHROID [Concomitant]
     Active Substance: LEVOTHYROXINE SODIUM
     Indication: PRODUCT USED FOR UNKNOWN INDICATION
     Dosage: UNK
     Route: 065
  10. ABILIFY [Suspect]
     Active Substance: ARIPIPRAZOLE
     Indication: MAJOR DEPRESSION
     Dosage: 10 MG, UNK
     Route: 065
     Dates: start: 200901, end: 20090120
  11. ABILIFY [Suspect]
     Active Substance: ARIPIPRAZOLE
     Indication: AUTISM SPECTRUM DISORDER
     Dosage: 5 MG, UNK
     Route: 065
  12. ABILIFY [Suspect]
     Active Substance: ARIPIPRAZOLE
     Dosage: 2.5 MG, UNK
     Route: 065
     Dates: start: 201003
  13. COGENTIN [Concomitant]
     Active Substance: BENZTROPINE MESYLATE
     Indication: DYSKINESIA
     Dosage: 1 MG, UNK
     Route: 065
  14. HALDOL [Concomitant]
     Active Substance: HALOPERIDOL
     Indication: PRODUCT USED FOR UNKNOWN INDICATION
     Dosage: 5 MG, UNK
     Route: 065
  15. LISINOPRIL/HCTZ [Concomitant]
     Active Substance: HYDROCHLOROTHIAZIDE\LISINOPRIL
     Indication: PRODUCT USED FOR UNKNOWN INDICATION
     Dosage: UNK
     Route: 065
     Dates: start: 20090922
  16. ABILIFY [Suspect]
     Active Substance: ARIPIPRAZOLE
     Indication: BIPOLAR I DISORDER
     Dosage: 5 MG, UNK
     Route: 065
     Dates: start: 20081209
  17. PROZAC [Concomitant]
     Active Substance: FLUOXETINE HYDROCHLORIDE
     Dosage: 80 MG, UNK
     Route: 065
  18. ZYPREXA [Concomitant]
     Active Substance: OLANZAPINE
     Dosage: 5 MG, QD
     Route: 065
  19. DIVALPROEX SODIUM. [Concomitant]
     Active Substance: DIVALPROEX SODIUM
     Indication: PRODUCT USED FOR UNKNOWN INDICATION
     Dosage: 250 MG, UNK
     Route: 065
     Dates: start: 20110724, end: 2018
  20. METFORMIN [Concomitant]
     Active Substance: METFORMIN HYDROCHLORIDE
     Indication: PRODUCT USED FOR UNKNOWN INDICATION
     Dosage: 500 MG, QD
     Route: 048
     Dates: start: 20101209
  21. SERTRALINE [Concomitant]
     Active Substance: SERTRALINE HYDROCHLORIDE
     Indication: PRODUCT USED FOR UNKNOWN INDICATION
     Dosage: 200 MG, UNK
     Route: 065
  22. GEODON [Concomitant]
     Active Substance: ZIPRASIDONE HYDROCHLORIDE\ZIPRASIDONE MESYLATE
     Indication: PRODUCT USED FOR UNKNOWN INDICATION
     Dosage: 40 MG, BID
     Route: 065
  23. DEPAKOTE [Concomitant]
     Active Substance: DIVALPROEX SODIUM
     Dosage: 500 MG, BID (2 PILLS AM/ 2 PILLS PM)
     Route: 065
  24. PRAVACHOL [Concomitant]
     Active Substance: PRAVASTATIN SODIUM
     Indication: PRODUCT USED FOR UNKNOWN INDICATION
     Dosage: 40 MG, QD
     Route: 048
     Dates: start: 20101209
  25. ABILIFY [Suspect]
     Active Substance: ARIPIPRAZOLE
     Indication: IRRITABILITY
     Dosage: 10 MG, UNK
     Route: 065
     Dates: start: 200905, end: 20100315
  26. CLONAZEPAM. [Concomitant]
     Active Substance: CLONAZEPAM
     Dosage: 0.5 MG, 6/DAY (3 OR 4 AT NIGHT))
     Route: 065
  27. CLONAZEPAM. [Concomitant]
     Active Substance: CLONAZEPAM
     Dosage: UNK
     Route: 065
     Dates: start: 20120112
  28. SERTRALINE [Concomitant]
     Active Substance: SERTRALINE HYDROCHLORIDE
     Dosage: 100 MG, UNK
     Route: 065
  29. SIMVASTATIN. [Concomitant]
     Active Substance: SIMVASTATIN
     Indication: PRODUCT USED FOR UNKNOWN INDICATION
     Dosage: UNK
     Route: 065
  30. LISINOPRIL/HCTZ [Concomitant]
     Active Substance: HYDROCHLOROTHIAZIDE\LISINOPRIL
     Dosage: UNK
     Route: 065
     Dates: start: 20120228, end: 2018
  31. HYDROCODONE [Concomitant]
     Active Substance: HYDROCODONE
     Indication: PRODUCT USED FOR UNKNOWN INDICATION
     Dosage: 10 MG, UNK
     Route: 065
     Dates: start: 20090611, end: 2013
  32. DEPAKOTE [Concomitant]
     Active Substance: DIVALPROEX SODIUM
     Dosage: 250 MG, UNK
     Route: 065
     Dates: start: 20030404, end: 20070302
  33. NAPROXEN. [Concomitant]
     Active Substance: NAPROXEN
     Indication: PRODUCT USED FOR UNKNOWN INDICATION
     Dosage: 500 MG, UNK
     Route: 065
     Dates: start: 20100623
  34. HYDROCODONE BITARTRATE AND ACETAMINOPHEN [Concomitant]
     Active Substance: ACETAMINOPHEN\HYDROCODONE BITARTRATE
     Indication: PRODUCT USED FOR UNKNOWN INDICATION
     Dosage: (10MG/500MG), UNK
     Route: 065
     Dates: start: 20090511
  35. ZOCOR [Concomitant]
     Active Substance: SIMVASTATIN
     Indication: PRODUCT USED FOR UNKNOWN INDICATION
     Dosage: UNK
     Route: 065
  36. ABILIFY [Suspect]
     Active Substance: ARIPIPRAZOLE
     Indication: ANXIETY
     Dosage: 5 MG, UNK
     Route: 065
     Dates: start: 200903
  37. ABILIFY [Suspect]
     Active Substance: ARIPIPRAZOLE
     Indication: SCHIZOPHRENIA
     Dosage: 7.5 MG, UNK
     Route: 065
     Dates: start: 200912
  38. ZYPREXA [Concomitant]
     Active Substance: OLANZAPINE
     Indication: PRODUCT USED FOR UNKNOWN INDICATION
     Dosage: 10 MG, UNK
     Route: 065
  39. VALIUM [Concomitant]
     Active Substance: DIAZEPAM
     Indication: ANXIETY
     Dosage: 10 MG, BID
     Route: 065
  40. CLONAZEPAM. [Concomitant]
     Active Substance: CLONAZEPAM
     Indication: PRODUCT USED FOR UNKNOWN INDICATION
     Dosage: 2 MG, QID
     Route: 065
  41. CLONAZEPAM. [Concomitant]
     Active Substance: CLONAZEPAM
     Dosage: 1 MG, TID
     Route: 065
  42. ZOLPIDEM [Concomitant]
     Active Substance: ZOLPIDEM\ZOLPIDEM TARTRATE
     Indication: PRODUCT USED FOR UNKNOWN INDICATION
     Dosage: 10 MG, UNK
     Route: 065
  43. DEPAKOTE [Concomitant]
     Active Substance: DIVALPROEX SODIUM
     Indication: PRODUCT USED FOR UNKNOWN INDICATION
     Dosage: 500 MG, BID (3 PILLS AM/ 3 PILLS PM)
     Route: 065
  44. DEXILANT [Concomitant]
     Active Substance: DEXLANSOPRAZOLE
     Indication: PRODUCT USED FOR UNKNOWN INDICATION
     Dosage: 60 MG, QD
     Route: 048

REACTIONS (50)
  - Blood sodium decreased [Unknown]
  - Monocyte count increased [Unknown]
  - Red blood cell count increased [Unknown]
  - Blood triglycerides increased [Unknown]
  - Glycosylated haemoglobin increased [Unknown]
  - Condition aggravated [Unknown]
  - Diverticulum [Unknown]
  - Red blood cell count decreased [Unknown]
  - Hallucination, visual [Unknown]
  - Blood urea increased [Unknown]
  - Pulmonary oedema [Unknown]
  - Psychotic disorder [Unknown]
  - Vitamin D deficiency [Unknown]
  - Haematocrit [Unknown]
  - Albumin globulin ratio decreased [Unknown]
  - Haemoglobin decreased [Unknown]
  - Emotional distress [Unknown]
  - Appetite disorder [Unknown]
  - Blood alkaline phosphatase increased [Unknown]
  - Dyspnoea [Unknown]
  - C-reactive protein increased [Unknown]
  - Brain natriuretic peptide increased [Unknown]
  - Blood cholesterol increased [Unknown]
  - Low density lipoprotein increased [Unknown]
  - Blood glucose increased [Unknown]
  - Nausea [Recovered/Resolved]
  - Bankruptcy [Unknown]
  - Blood thyroid stimulating hormone increased [Unknown]
  - Neuropsychiatric symptoms [Unknown]
  - Mania [Unknown]
  - Eating disorder [Recovered/Resolved]
  - Tremor [Unknown]
  - Gambling disorder [Not Recovered/Not Resolved]
  - Dyskinesia [Recovered/Resolved]
  - Product use in unapproved indication [Unknown]
  - Non-high-density lipoprotein cholesterol increased [Unknown]
  - Blood magnesium [Unknown]
  - Blood albumin decreased [Unknown]
  - Nightmare [Unknown]
  - Depressed mood [Unknown]
  - Weight increased [Recovered/Resolved]
  - Tachyarrhythmia [Unknown]
  - Hypoacusis [Unknown]
  - LDL/HDL ratio increased [Unknown]
  - Blood potassium decreased [Unknown]
  - Economic problem [Unknown]
  - Injury [Unknown]
  - Mean cell haemoglobin concentration [Unknown]
  - Anion gap [Unknown]
  - Blood chloride increased [Unknown]

NARRATIVE: CASE EVENT DATE: 200901
